FAERS Safety Report 24010767 (Version 11)
Quarter: 2024Q4

REPORT INFORMATION
  Report Type: Spontaneous
  Country: US (occurrence: US)
  Receive Date: 20240625
  Receipt Date: 20241205
  Transmission Date: 20250115
  Serious: No
  Sender: KARYOPHARM THERAPEUTICS
  Company Number: US-KARYOPHARM-2024KPT001209

PATIENT

DRUGS (20)
  1. XPOVIO [Suspect]
     Active Substance: SELINEXOR
     Indication: Plasma cell myeloma
     Dosage: 100 MG, WEEKLY
     Route: 048
     Dates: start: 20240618
  2. XPOVIO [Suspect]
     Active Substance: SELINEXOR
     Dosage: 80 MG, WEEKLY
     Route: 048
     Dates: start: 20240720, end: 202410
  3. XPOVIO [Suspect]
     Active Substance: SELINEXOR
     Dosage: 60 MG, WEEKLY
     Route: 048
     Dates: start: 202410
  4. ASPIRIN [Concomitant]
     Active Substance: ASPIRIN
  5. ACYCLOVIR [Concomitant]
     Active Substance: ACYCLOVIR
  6. CARVEDILOL [Concomitant]
     Active Substance: CARVEDILOL
  7. DOXAZOSIN [Concomitant]
     Active Substance: DOXAZOSIN\DOXAZOSIN MESYLATE
  8. ENTRESTO [Concomitant]
     Active Substance: SACUBITRIL\VALSARTAN
  9. ELIQUIS [Concomitant]
     Active Substance: APIXABAN
  10. FINASTERIDE [Concomitant]
     Active Substance: FINASTERIDE
  11. FUROSEMIDE [Concomitant]
     Active Substance: FUROSEMIDE
  12. JARDIANCE [Concomitant]
     Active Substance: EMPAGLIFLOZIN
  13. LASIX [Concomitant]
     Active Substance: FUROSEMIDE
  14. OXYCONTIN [Concomitant]
     Active Substance: OXYCODONE HYDROCHLORIDE
  15. OXYCODONE [Concomitant]
     Active Substance: OXYCODONE
  16. PRAVASTATIN [Concomitant]
     Active Substance: PRAVASTATIN
  17. PROCHLORPERAZINE [Concomitant]
     Active Substance: PROCHLORPERAZINE
  18. SENOKOT [Concomitant]
     Active Substance: SENNOSIDES
  19. VELCADE [Concomitant]
     Active Substance: BORTEZOMIB
  20. XGEVA [Concomitant]
     Active Substance: DENOSUMAB

REACTIONS (11)
  - Tremor [Not Recovered/Not Resolved]
  - Brain fog [Recovering/Resolving]
  - Abdominal discomfort [Unknown]
  - Eye swelling [Recovering/Resolving]
  - Peripheral swelling [Not Recovered/Not Resolved]
  - Pruritus [Recovering/Resolving]
  - Neuropathy peripheral [Not Recovered/Not Resolved]
  - Memory impairment [Not Recovered/Not Resolved]
  - Nausea [Not Recovered/Not Resolved]
  - Fatigue [Recovering/Resolving]
  - Asthenia [Recovered/Resolved]

NARRATIVE: CASE EVENT DATE: 20240101
